FAERS Safety Report 5282954-7 (Version None)
Quarter: 2007Q1

REPORT INFORMATION
  Report Type: 
  Country: None (occurrence: None)
  Receive Date: 20070328
  Receipt Date: 20070328
  Transmission Date: 20070707
  Serious: Yes (Other)
  Sender: FDA-Public Use
  Company Number: None

PATIENT
  Age: 74 Year
  Sex: Male
  Weight: 81.9 kg

DRUGS (10)
  1. NIACIN [Suspect]
  2. EZETIMIBE [Concomitant]
  3. LISINOPRIL [Concomitant]
  4. ACCU-CHEK COMFORT CURVE-H TEST STRIP [Concomitant]
  5. ALLOPURINOL [Concomitant]
  6. GABAPENTIN [Concomitant]
  7. MELOXICAM [Concomitant]
  8. HYDROCHLOROTHIAZIDE [Concomitant]
  9. GLYBURIDE [Concomitant]
  10. VARDENAFIL HCL [Concomitant]

REACTIONS (1)
  - MUSCLE SPASMS [None]
